FAERS Safety Report 10621076 (Version 1)
Quarter: 2014Q4

REPORT INFORMATION
  Report Type: Report from Study
  Country: US (occurrence: US)
  Receive Date: 20141203
  Receipt Date: 20141203
  Transmission Date: 20150529
  Serious: Yes (Death)
  Sender: FDA-Public Use
  Company Number: US-ROCHE-1500920

PATIENT

DRUGS (9)
  1. TACROLIMUS. [Suspect]
     Active Substance: TACROLIMUS
     Dosage: RESTARTED AFTER DELAY AND THEN GRADUALLY INCREASED TO ACHIEVE EXPECTED LEVEL
     Route: 065
  2. METHYLPREDNISOLONE. [Suspect]
     Active Substance: METHYLPREDNISOLONE
     Indication: PROPHYLAXIS AGAINST TRANSPLANT REJECTION
     Dosage: PRE-TRANSPLANT PHASE; IN ANHEPATIC PHASE.
     Route: 042
  3. PREDNISONE. [Suspect]
     Active Substance: PREDNISONE
     Indication: PROPHYLAXIS AGAINST TRANSPLANT REJECTION
     Dosage: POST-TRANSPLANT ON DAY 6, MAINTENANCE DOSE
     Route: 048
  4. PREDNISONE. [Suspect]
     Active Substance: PREDNISONE
     Dosage: DOSE REDUCED BY POST-OPERATIVE DAY 15.
     Route: 048
  5. TACROLIMUS. [Suspect]
     Active Substance: TACROLIMUS
     Indication: PROPHYLAXIS AGAINST TRANSPLANT REJECTION
     Dosage: IN THE PRETRANSPLANT PHASE; INDUCTION WITH SINGLE ORAL DOSE GIVEN ON CALL TO SURGERY
     Route: 048
  6. MYCOPHENOLATE MOFETIL. [Suspect]
     Active Substance: MYCOPHENOLATE MOFETIL
     Indication: PROPHYLAXIS AGAINST TRANSPLANT REJECTION
     Dosage: PRE-TRANSLPANT INDUCTION THERAPY: 1 G INFUSED OVER 2 HRS WITH THE START OF SURGERY
     Route: 042
  7. METHYLPREDNISOLONE. [Suspect]
     Active Substance: METHYLPREDNISOLONE
     Dosage: POST-TRANSPLANT PHASE: A STANDARD TOTAL DOSE OF 600 MG WAS TAPERED OVER 5 DAYS.
     Route: 042
  8. MYCOPHENOLATE MOFETIL. [Suspect]
     Active Substance: MYCOPHENOLATE MOFETIL
     Dosage: POST-TRANSLPANT PHASE: 1 G INFUSED OVER 2 HRS TWICE DAILY FOR 4-7 DAYS AFTER LIVER TRANSPLANTATION
     Route: 042
  9. MYCOPHENOLATE MOFETIL. [Suspect]
     Active Substance: MYCOPHENOLATE MOFETIL
     Indication: PROPHYLAXIS AGAINST TRANSPLANT REJECTION
     Route: 048

REACTIONS (1)
  - Hepatocellular carcinoma [Fatal]
